FAERS Safety Report 6638930-2 (Version None)
Quarter: 2010Q1

REPORT INFORMATION
  Report Type: 
  Country: None (occurrence: None)
  Receive Date: 20100317
  Receipt Date: 20100305
  Transmission Date: 20100710
  Serious: Yes (Other)
  Sender: FDA-Public Use
  Company Number: PHEH2009US14310

PATIENT
  Sex: Female

DRUGS (4)
  1. GLEEVEC [Suspect]
     Indication: GASTROINTESTINAL STROMAL TUMOUR
     Dosage: UNK
     Dates: start: 20060710
  2. CHEMOTHERAPEUTICS NOS [Suspect]
  3. ORAL BLOOD GLUCOSE LOWERING DRUGS [Concomitant]
  4. ANTIHYPERTENSIVE DRUGS [Concomitant]

REACTIONS (8)
  - GASTROINTESTINAL STROMAL TUMOUR [None]
  - HEPATECTOMY [None]
  - IMPETIGO [None]
  - MALIGNANT NEOPLASM PROGRESSION [None]
  - METASTASES TO BONE [None]
  - METASTASES TO LIVER [None]
  - MOUTH ULCERATION [None]
  - RASH [None]
